FAERS Safety Report 12204047 (Version 1)
Quarter: 2016Q1

REPORT INFORMATION
  Report Type: Spontaneous
  Country: US (occurrence: US)
  Receive Date: 20160323
  Receipt Date: 20160323
  Transmission Date: 20160526
  Serious: No
  Sender: FDA-Public Use
  Company Number: US-PFIZER INC-2016130849

PATIENT
  Age: 68 Year
  Sex: Male

DRUGS (5)
  1. IBUPROFEN. [Suspect]
     Active Substance: IBUPROFEN
     Indication: DIABETIC FOOT
     Dosage: 600 MG, 2X/DAY
     Route: 048
  2. LYRICA [Suspect]
     Active Substance: PREGABALIN
     Indication: DIABETIC FOOT
     Dosage: 100 MG, 2X/DAY
     Route: 048
     Dates: start: 2012
  3. AMLODIPINE [Concomitant]
     Active Substance: AMLODIPINE BESYLATE
     Indication: BLOOD PRESSURE ABNORMAL
     Dosage: 10 MG, DAILY
     Route: 048
  4. METFORMIN [Concomitant]
     Active Substance: METFORMIN HYDROCHLORIDE
     Indication: BLOOD GLUCOSE ABNORMAL
     Dosage: 1000 MG, 2X/DAY
     Dates: start: 1994
  5. LISINOPRIL/HCTZ [Concomitant]
     Active Substance: HYDROCHLOROTHIAZIDE\LISINOPRIL
     Indication: HYPERTENSION
     Dosage: [HYDROCHLOROTHIAZIDE 12.5MG]/[LISINOPRIL 20MG], TABLETS, 1X/DAY
     Route: 048

REACTIONS (1)
  - Drug ineffective for unapproved indication [Unknown]
